FAERS Safety Report 5479507-4 (Version None)
Quarter: 2007Q4

REPORT INFORMATION
  Report Type: 
  Country: None (occurrence: None)
  Receive Date: 20071008
  Receipt Date: 20070927
  Transmission Date: 20080405
  Serious: Yes (Other)
  Sender: FDA-Public Use
  Company Number: CN-ROCHE-522271

PATIENT
  Age: 27 Year
  Sex: Female

DRUGS (2)
  1. PEG-INTERFERON A-2A (RO 25-8310) [Suspect]
     Indication: HEPATITIS C
     Route: 058
  2. RIBAVIRIN [Concomitant]
     Indication: HEPATITIS

REACTIONS (2)
  - MENORRHAGIA [None]
  - PLATELET COUNT DECREASED [None]
